FAERS Safety Report 21784189 (Version 2)
Quarter: 2023Q1

REPORT INFORMATION
  Report Type: Report from Study
  Country: IT (occurrence: IT)
  Receive Date: 20221227
  Receipt Date: 20230202
  Transmission Date: 20230418
  Serious: Yes (Other)
  Sender: FDA-Public Use
  Company Number: IT-ACRAF SpA-2022-029395

PATIENT

DRUGS (2)
  1. XCOPRI [Suspect]
     Active Substance: CENOBAMATE
     Indication: Epilepsy
     Dosage: 50 MILLIGRAM, TABLET
     Route: 065
  2. XCOPRI [Suspect]
     Active Substance: CENOBAMATE
     Dosage: 100 MILLIGRAM
     Route: 065
     Dates: start: 20230102

REACTIONS (5)
  - Anxiety [Unknown]
  - Heart rate increased [Unknown]
  - Urinary incontinence [Unknown]
  - Memory impairment [Unknown]
  - Speech disorder [Unknown]
